FAERS Safety Report 9565384 (Version 1)
Quarter: 2013Q3

REPORT INFORMATION
  Report Type: Spontaneous
  Country: NL (occurrence: NL)
  Receive Date: 20130930
  Receipt Date: 20130930
  Transmission Date: 20140515
  Serious: Yes (Hospitalization)
  Sender: FDA-Public Use
  Company Number: PHHY2013NL107195

PATIENT
  Sex: Female

DRUGS (4)
  1. NEORAL [Suspect]
     Indication: DERMATITIS ATOPIC
     Dosage: 25 MG, (2DD125MG)
     Dates: start: 20130522, end: 201308
  2. ENALAPRIL [Suspect]
     Indication: HYPERTENSION
     Dosage: 5 MG, DAILY (1DD 5 MG)
     Dates: start: 2011
  3. HYDROXYZINE [Suspect]
     Indication: PRURITUS
     Dosage: 10 MG, DAILY BEFORE NIGHT
     Dates: start: 2012
  4. ORAL CONTRACEPTIVE NOS [Concomitant]

REACTIONS (5)
  - Acute generalised exanthematous pustulosis [Recovered/Resolved]
  - Drug eruption [Recovered/Resolved]
  - Lip swelling [Unknown]
  - Erythema [Unknown]
  - Rash pustular [Unknown]
